FAERS Safety Report 8465517-1 (Version None)
Quarter: 2012Q2

REPORT INFORMATION
  Report Type: 
  Country: None (occurrence: None)
  Receive Date: 20120626
  Receipt Date: 20120618
  Transmission Date: 20120825
  Serious: Yes (Hospitalization)
  Sender: FDA-Public Use
  Company Number: US-BAYER-2012-062076

PATIENT
  Age: 50 Year
  Sex: Female
  Weight: 63.039 kg

DRUGS (10)
  1. ATENOLOL [Concomitant]
     Indication: HYPERTENSION
     Dosage: 50 MG, DAILY
     Dates: start: 20040302, end: 20120124
  2. ACETAMINOPHEN [Concomitant]
  3. DYAZIDE [Concomitant]
  4. DROSPIRENONE AND ETHINYL ESTRADIOL [Suspect]
  5. ZOCOR [Concomitant]
  6. YAZ [Suspect]
  7. PLAVIX [Concomitant]
  8. ULTRAM [Concomitant]
     Dosage: UNK UNK, PRN
  9. PROPHYLACTIC ANTIBIOTIC [Concomitant]
     Route: 060
  10. YASMIN [Suspect]
     Indication: CONTRACEPTION

REACTIONS (1)
  - CEREBROVASCULAR ACCIDENT [None]
